FAERS Safety Report 4676436-0 (Version None)
Quarter: 2005Q2

REPORT INFORMATION
  Report Type: 
  Country: None (occurrence: None)
  Receive Date: 20050527
  Receipt Date: 20050222
  Transmission Date: 20051028
  Serious: Yes (Other)
  Sender: FDA-Public Use
  Company Number: US-MERCK-0502USA03169

PATIENT
  Age: 43 Year
  Sex: Female
  Weight: 57 kg

DRUGS (10)
  1. VIOXX [Suspect]
     Indication: LIGAMENT REPAIR
     Route: 048
     Dates: start: 20030201
  2. VIOXX [Suspect]
     Route: 048
  3. VIOXX [Suspect]
     Route: 048
     Dates: end: 20041001
  4. PERCOCET [Concomitant]
     Route: 065
  5. TORADOL [Concomitant]
     Route: 065
  6. WARFARIN [Concomitant]
     Route: 065
  7. ALESSE [Concomitant]
     Route: 065
  8. HYDROCODONE BITARTRATE [Concomitant]
     Route: 065
  9. METHYLPREDNISOLONE [Concomitant]
     Route: 065
  10. BEXTRA [Concomitant]
     Route: 065
     Dates: start: 20040101

REACTIONS (6)
  - ACTIVITIES OF DAILY LIVING IMPAIRED [None]
  - DEEP VEIN THROMBOSIS [None]
  - PAIN [None]
  - PARATHYROID DISORDER [None]
  - PULMONARY EMBOLISM [None]
  - SWELLING [None]
